FAERS Safety Report 20663653 (Version 1)
Quarter: 2022Q2

REPORT INFORMATION
  Report Type: Spontaneous
  Country: US (occurrence: US)
  Receive Date: 20220401
  Receipt Date: 20220401
  Transmission Date: 20220721
  Serious: Yes (Hospitalization, Other)
  Sender: FDA-Public Use
  Company Number: US-AMGEN-USASP2022052141

PATIENT
  Age: 70 Year
  Sex: Male

DRUGS (6)
  1. LUMAKRAS [Suspect]
     Active Substance: SOTORASIB
     Indication: Non-small cell lung cancer
     Dosage: 960 MILLIGRAM
     Route: 065
     Dates: start: 202107
  2. LUMAKRAS [Suspect]
     Active Substance: SOTORASIB
     Dosage: 480 MILLIGRAM
     Route: 065
  3. LUMAKRAS [Suspect]
     Active Substance: SOTORASIB
     Dosage: 240 MILLIGRAM
     Route: 065
  4. LUMAKRAS [Suspect]
     Active Substance: SOTORASIB
     Dosage: 240 MILLIGRAM
     Route: 065
  5. LUMAKRAS [Suspect]
     Active Substance: SOTORASIB
     Dosage: 360 MILLIGRAM
     Route: 065
  6. LUMAKRAS [Suspect]
     Active Substance: SOTORASIB
     Dosage: 720 MILLIGRAM
     Route: 065

REACTIONS (3)
  - Infection [Unknown]
  - Non-small cell lung cancer [Unknown]
  - Diarrhoea [Recovering/Resolving]

NARRATIVE: CASE EVENT DATE: 20210101
